FAERS Safety Report 4275386-1 (Version None)
Quarter: 2004Q1

REPORT INFORMATION
  Report Type: 
  Country: None (occurrence: None)
  Receive Date: 20040116
  Receipt Date: 20040113
  Transmission Date: 20041129
  Serious: Yes (Hospitalization)
  Sender: FDA-Public Use
  Company Number: TPA2004A00042

PATIENT
  Age: 46 Year
  Sex: Male
  Weight: 97.5234 kg

DRUGS (2)
  1. ACTOS [Suspect]
     Indication: DIABETES MELLITUS NON-INSULIN-DEPENDENT
     Dosage: 30 MG, 1 IN 1 D, PER ORAL
     Route: 048
     Dates: start: 20020601
  2. GLUCOVANCE (GLIBOMET) [Concomitant]

REACTIONS (2)
  - PNEUMONIA [None]
  - SPINAL COMPRESSION FRACTURE [None]
